FAERS Safety Report 5220994-4 (Version None)
Quarter: 2007Q1

REPORT INFORMATION
  Report Type: 
  Country: None (occurrence: None)
  Receive Date: 20070126
  Receipt Date: 20070116
  Transmission Date: 20070707
  Serious: Yes (Hospitalization)
  Sender: FDA-Public Use
  Company Number: US-ROCHE-476805

PATIENT
  Sex: Male

DRUGS (5)
  1. FUZEON [Suspect]
     Indication: DRUG USE FOR UNKNOWN INDICATION
     Route: 065
     Dates: start: 20061031
  2. FUZEON [Suspect]
     Dosage: CUSTOMER DISCONTINUED FOR ABOUT ONE WEEK BUT NOW HAS BEEN BACK ON IT FOR ONE WEEK.
     Route: 065
  3. ACYCLOVIR [Concomitant]
  4. PREDNISONE [Concomitant]
  5. VALTREX [Concomitant]

REACTIONS (11)
  - ABDOMINAL PAIN UPPER [None]
  - ASTHENIA [None]
  - DECREASED APPETITE [None]
  - DEPRESSION [None]
  - DYSGEUSIA [None]
  - INSOMNIA [None]
  - LYMPHADENOPATHY [None]
  - SINUS DISORDER [None]
  - THROAT IRRITATION [None]
  - THROAT LESION [None]
  - WEIGHT DECREASED [None]
